FAERS Safety Report 9912220 (Version 1)
Quarter: 2014Q1

REPORT INFORMATION
  Report Type: Spontaneous
  Country: US (occurrence: US)
  Receive Date: 20140220
  Receipt Date: 20140220
  Transmission Date: 20141002
  Serious: No
  Sender: FDA-Public Use
  Company Number: US-SA-2014SA011105

PATIENT
  Age: 43 Year
  Sex: Female

DRUGS (1)
  1. AUVI-Q [Suspect]
     Indication: URTICARIA
     Route: 065
     Dates: start: 2013

REACTIONS (2)
  - Injection site haemorrhage [Unknown]
  - Drug ineffective [Unknown]
